FAERS Safety Report 16090897 (Version 2)
Quarter: 2019Q1

REPORT INFORMATION
  Report Type: Spontaneous
  Country: GB (occurrence: GB)
  Receive Date: 20190319
  Receipt Date: 20190325
  Transmission Date: 20190418
  Serious: No
  Sender: FDA-Public Use
  Company Number: GB-PFIZER INC-2019118347

PATIENT
  Age: 77 Year
  Sex: Female
  Weight: 81 kg

DRUGS (13)
  1. LAXIDO [Concomitant]
     Active Substance: POLYETHYLENE GLYCOL 3350\POTASSIUM CHLORIDE\SODIUM BICARBONATE\SODIUM CHLORIDE
     Indication: CONSTIPATION
     Dosage: 2 DF, (AT NIGHT)
     Dates: start: 20181018
  2. FUROSEMIDE. [Concomitant]
     Active Substance: FUROSEMIDE
     Dosage: 2 DF, DAILY
     Dates: start: 20181018
  3. AMITRIPTYLINE HYDROCHLORIDE. [Concomitant]
     Active Substance: AMITRIPTYLINE HYDROCHLORIDE
     Dosage: 2 DF, (AT NIGHT)
     Dates: start: 20181018
  4. DIGOXIN. [Concomitant]
     Active Substance: DIGOXIN
     Dosage: 1 DF, DAILY
     Dates: start: 20181119
  5. PARACETAMOL [Concomitant]
     Active Substance: ACETAMINOPHEN
     Dosage: 4 DF, DAILY
     Dates: start: 20181018
  6. BISOPROLOL [Concomitant]
     Active Substance: BISOPROLOL
     Dosage: 2 DF, DAILY
     Dates: start: 20181119
  7. SPIRONOLACTONE. [Concomitant]
     Active Substance: SPIRONOLACTONE
     Dosage: UNK, (HALF IN THE MORNING AND HALF IN THE NIGHT)
     Dates: start: 20161201
  8. ATORVASTATIN [Concomitant]
     Active Substance: ATORVASTATIN
     Dosage: 1 DF, (AT NIGHT)
     Dates: start: 20181119
  9. WARFARIN SODIUM. [Concomitant]
     Active Substance: WARFARIN SODIUM
     Dosage: UNK
     Dates: start: 20181119
  10. RAMIPRIL. [Suspect]
     Active Substance: RAMIPRIL
     Dosage: 2.5 MG, DAILY
     Route: 065
     Dates: start: 20190104
  11. OMEPRAZOLE. [Concomitant]
     Active Substance: OMEPRAZOLE
     Dosage: 1 DF, DAILY (AS REQUIRED)
     Dates: start: 20181018
  12. MENTHOL. [Concomitant]
     Active Substance: MENTHOL
     Dosage: UNK
     Dates: start: 20190213
  13. DUROGESIC [Concomitant]
     Active Substance: FENTANYL
     Dosage: 1 DF, EVERY 3 DAYS
     Dates: start: 20170915

REACTIONS (3)
  - Pruritus [Unknown]
  - Swelling face [Unknown]
  - Rash [Recovered/Resolved]
